FAERS Safety Report 14924371 (Version 4)
Quarter: 2018Q4

REPORT INFORMATION
  Report Type: Report from Study
  Country: CA (occurrence: CA)
  Receive Date: 20180522
  Receipt Date: 20181023
  Transmission Date: 20190204
  Serious: Yes (Hospitalization, Other)
  Sender: FDA-Public Use
  Company Number: CA-GLAXOSMITHKLINE-CA2018GSK090499

PATIENT
  Sex: Male

DRUGS (3)
  1. FLUTICASONE FUROATE + VILANTEROL TRIFENATATE [Suspect]
     Active Substance: FLUTICASONE FUROATE\VILANTEROL TRIFENATATE
     Indication: ASTHMA
     Dosage: UNK
     Route: 055
  2. PREDNISONE. [Suspect]
     Active Substance: PREDNISONE
     Indication: POLYMYOSITIS
     Dosage: UNK
  3. NUCALA [Suspect]
     Active Substance: MEPOLIZUMAB
     Indication: ASTHMA
     Dosage: 100 MG, Z
     Route: 042
     Dates: start: 20180601

REACTIONS (10)
  - Weight increased [Unknown]
  - Loss of personal independence in daily activities [Unknown]
  - Wheezing [Unknown]
  - Osteoporosis [Unknown]
  - Skin atrophy [Unknown]
  - Dyspnoea [Unknown]
  - Asthma [Recovered/Resolved]
  - Sleep disorder [Unknown]
  - Skin disorder [Unknown]
  - Polymyositis [Unknown]
